FAERS Safety Report 7788937-7 (Version None)
Quarter: 2011Q3

REPORT INFORMATION
  Report Type: 
  Country: None (occurrence: None)
  Receive Date: 20110930
  Receipt Date: 20110916
  Transmission Date: 20111222
  Serious: Yes (Other)
  Sender: FDA-Public Use
  Company Number: PHHY2011JP79939

PATIENT
  Age: 51 Year
  Sex: Male

DRUGS (3)
  1. NEORAL [Suspect]
     Indication: APLASTIC ANAEMIA
     Dosage: 140 MG DAILY
     Route: 048
     Dates: start: 20080423
  2. ACUATIM [Concomitant]
     Dosage: UNK UKN, UNK
     Dates: start: 20110812, end: 20110915
  3. PREDNISOLONE [Concomitant]
     Dosage: UNK UKN, UNK
     Dates: start: 20110916

REACTIONS (4)
  - FOLLICULITIS [None]
  - SKIN NECROSIS [None]
  - RASH [None]
  - SKIN ULCER [None]
